FAERS Safety Report 8829703 (Version 1)
Quarter: 2012Q4

REPORT INFORMATION
  Report Type: 
  Country: US (occurrence: US)
  Receive Date: 20121008
  Receipt Date: 20121008
  Transmission Date: 20130627
  Serious: No
  Sender: FDA-Public Use
  Company Number: US-ASTRAZENECA-2012SE74438

PATIENT
  Age: 56 Year
  Sex: Female

DRUGS (4)
  1. PULMICORT TURBUHALER [Suspect]
     Indication: ASTHMA
     Route: 055
  2. SYMBICORT PMDI [Suspect]
     Indication: ASTHMA
     Dosage: 80 MCG, BID
     Route: 055
  3. SEREVENT [Concomitant]
     Indication: ASTHMA
     Route: 055
  4. COMBIVENT [Concomitant]
     Indication: ASTHMA
     Route: 055

REACTIONS (4)
  - Respiratory disorder [Unknown]
  - Malaise [Unknown]
  - Impaired work ability [Unknown]
  - Memory impairment [Unknown]
